FAERS Safety Report 6432191-5 (Version None)
Quarter: 2009Q4

REPORT INFORMATION
  Report Type: 
  Country: None (occurrence: None)
  Receive Date: 20091109
  Receipt Date: 20091105
  Transmission Date: 20100525
  Serious: Yes (Death, Other)
  Sender: FDA-Public Use
  Company Number: FR-BRISTOL-MYERS SQUIBB COMPANY-14845408

PATIENT
  Age: 4 Decade
  Sex: Male

DRUGS (4)
  1. ABILIFY [Suspect]
  2. TEGRETOL [Suspect]
  3. LITHIUM CARBONATE [Suspect]
  4. LOXAPAC [Suspect]

REACTIONS (3)
  - DEATH [None]
  - ELECTROLYTE IMBALANCE [None]
  - MALABSORPTION [None]
